FAERS Safety Report 7014437-8 (Version None)
Quarter: 2010Q3

REPORT INFORMATION
  Report Type: 
  Country: None (occurrence: None)
  Receive Date: 20100927
  Receipt Date: 20100820
  Transmission Date: 20110219
  Serious: No
  Sender: FDA-Public Use
  Company Number: US-MYLANLABS-2010S1015415

PATIENT
  Sex: Female

DRUGS (2)
  1. ANASTROZOLE TABLETS [Suspect]
     Indication: BREAST CANCER
  2. ARIMIDEX [Suspect]
     Indication: BREAST CANCER

REACTIONS (4)
  - ANXIETY [None]
  - DEPRESSION [None]
  - DIARRHOEA [None]
  - HOT FLUSH [None]
